FAERS Safety Report 9459601 (Version 1)
Quarter: 2013Q3

REPORT INFORMATION
  Report Type: Spontaneous
  Country: US (occurrence: US)
  Receive Date: 20130815
  Receipt Date: 20130815
  Transmission Date: 20140515
  Serious: No
  Sender: FDA-Public Use
  Company Number: US-COVIDIEN/TYCO HEALTHCARE/MALLINCKRODT-T201303950

PATIENT
  Age: 41 Year
  Sex: Male
  Weight: 59.86 kg

DRUGS (5)
  1. FENTANYL TRANSDERMAL SYSTEM [Suspect]
     Indication: PAIN
     Dosage: 100 UG/HR, Q 48 HRS
     Route: 062
     Dates: start: 20130726, end: 20130803
  2. OXYCODONE [Concomitant]
     Indication: PAIN
     Dosage: 30 MG
  3. DILANTIN                           /00017401/ [Concomitant]
     Indication: CONVULSION
     Dosage: UNK
  4. KEPPRA [Concomitant]
     Indication: CONVULSION
     Dosage: UNK
  5. FENTANYL [Concomitant]
     Dosage: UNK
     Dates: start: 2009, end: 20130726

REACTIONS (2)
  - Application site discolouration [Recovered/Resolved]
  - Drug ineffective [Recovered/Resolved]
